FAERS Safety Report 7717513-7 (Version None)
Quarter: 2011Q3

REPORT INFORMATION
  Report Type: 
  Country: None (occurrence: None)
  Receive Date: 20110823
  Receipt Date: 20080815
  Transmission Date: 20111222
  Serious: Yes (Other)
  Sender: FDA-Public Use
  Company Number: 2007106572

PATIENT
  Age: 54 Year
  Sex: Male
  Weight: 113 kg

DRUGS (23)
  1. DEXTROSE [Concomitant]
  2. DOCUSATE (DOCUSATE) [Concomitant]
  3. INSULIN (INSULIN) [Concomitant]
  4. PREDNISONE [Concomitant]
  5. TRAMADOL HCL [Concomitant]
  6. TUBERSOL [Concomitant]
  7. DEXAMETHASONE [Concomitant]
  8. ZOLPIDEM [Concomitant]
  9. CIMETIDINE [Concomitant]
  10. PSYLLIUM (PSYLLIUM) [Concomitant]
  11. SODIUM BICARBONATE IN PLASTIC CONTAINER [Concomitant]
  12. DIPHENHYDRAMINE HCL [Concomitant]
  13. ATGAM SOLUTION, STERILE (ANTITHMOCYTE IMMUNOGLOBULIN) [Suspect]
     Dosage: (4480 MG), INTRAVENOUS
     Route: 042
     Dates: start: 20071203
  14. OLANZAPINE [Concomitant]
  15. CYCLOSPORINE [Concomitant]
  16. HEPARIN [Concomitant]
  17. DEXTROSE 5% [Concomitant]
  18. FUROSEMIDE [Concomitant]
  19. SODIUM POLYSTYRENE SULFONATE (SODIUM POLYSTYRENE SULFONATE) [Concomitant]
  20. ACETAMINOPHEN [Concomitant]
  21. ALUMINUM HYDROXIDE AND MAGNESIUM TRISILICATE [Concomitant]
  22. PAMIDRONATE DISODIUM [Concomitant]
  23. ONDANSETRON [Concomitant]

REACTIONS (5)
  - CHEST PAIN [None]
  - PYREXIA [None]
  - BACK PAIN [None]
  - CHILLS [None]
  - HYPOTENSION [None]
